FAERS Safety Report 25543464 (Version 1)
Quarter: 2025Q3

REPORT INFORMATION
  Report Type: Spontaneous
  Country: EU (occurrence: EU)
  Receive Date: 20250711
  Receipt Date: 20250711
  Transmission Date: 20251021
  Serious: Yes (Other)
  Sender: AUROBINDO
  Company Number: EU-MLMSERVICE-20250630-PI558828-00202-1

PATIENT
  Age: 77 Year
  Sex: Male

DRUGS (10)
  1. LINEZOLID [Suspect]
     Active Substance: LINEZOLID
     Indication: CNS ventriculitis
     Dosage: 1200 MILLIGRAM, ONCE A DAY
     Route: 065
  2. TOLVAPTAN [Concomitant]
     Active Substance: TOLVAPTAN
     Indication: Inappropriate antidiuretic hormone secretion
     Route: 048
  3. RIFAMPIN [Concomitant]
     Active Substance: RIFAMPIN
     Indication: CNS ventriculitis
     Route: 042
  4. RIFAMPIN [Concomitant]
     Active Substance: RIFAMPIN
     Indication: Central nervous system infection
  5. ETHAMBUTOL [Concomitant]
     Active Substance: ETHAMBUTOL HYDROCHLORIDE
     Indication: CNS ventriculitis
     Route: 042
  6. ETHAMBUTOL [Concomitant]
     Active Substance: ETHAMBUTOL HYDROCHLORIDE
     Indication: Central nervous system infection
  7. ISONIAZID [Concomitant]
     Active Substance: ISONIAZID
     Indication: CNS ventriculitis
     Route: 042
  8. ISONIAZID [Concomitant]
     Active Substance: ISONIAZID
     Indication: Central nervous system infection
  9. DEXAMETHASONE [Concomitant]
     Active Substance: DEXAMETHASONE
     Indication: CNS ventriculitis
     Dosage: 32 MILLIGRAM, ONCE A DAY
     Route: 065
  10. DEXAMETHASONE [Concomitant]
     Active Substance: DEXAMETHASONE
     Indication: Central nervous system infection

REACTIONS (1)
  - Thrombocytopenia [Unknown]
